FAERS Safety Report 14045849 (Version 3)
Quarter: 2018Q2

REPORT INFORMATION
  Report Type: Report from Study
  Country: None (occurrence: US)
  Receive Date: 20171005
  Receipt Date: 20180427
  Transmission Date: 20180711
  Serious: Yes (Hospitalization, Other)
  Sender: FDA-Public Use
  Company Number: US-ABBVIE-17K-163-2095811-00

PATIENT
  Age: 28 Year
  Sex: Female

DRUGS (6)
  1. IRON [Concomitant]
     Active Substance: IRON
     Indication: PRODUCT USED FOR UNKNOWN INDICATION
  2. PREDNISONE. [Concomitant]
     Active Substance: PREDNISONE
     Indication: PRODUCT USED FOR UNKNOWN INDICATION
  3. REMICADE [Suspect]
     Active Substance: INFLIXIMAB
     Indication: PRODUCT USED FOR UNKNOWN INDICATION
     Route: 065
  4. PRENATAL VITAMIN [Concomitant]
     Active Substance: VITAMINS
     Indication: PRODUCT USED FOR UNKNOWN INDICATION
  5. HUMIRA [Suspect]
     Active Substance: ADALIMUMAB
     Indication: COLITIS ULCERATIVE
     Route: 058
     Dates: start: 20160903, end: 201702
  6. HUMIRA [Suspect]
     Active Substance: ADALIMUMAB
     Dosage: STOPPED IN 2ND MONTH OF PREGNANCY
     Route: 058
     Dates: start: 201702, end: 201707

REACTIONS (11)
  - Postoperative ileus [Recovered/Resolved]
  - Cerebral thrombosis [Recovering/Resolving]
  - Drug specific antibody [Unknown]
  - Exposure during pregnancy [Unknown]
  - Small intestinal obstruction [Recovered/Resolved]
  - Drug ineffective [Not Recovered/Not Resolved]
  - Colitis ulcerative [Recovered/Resolved]
  - Live birth [Unknown]
  - Drug effect incomplete [Recovering/Resolving]
  - Placenta praevia [Recovered/Resolved]
  - Premature delivery [Unknown]

NARRATIVE: CASE EVENT DATE: 2017
